FAERS Safety Report 10083912 (Version 3)
Quarter: 2014Q2

REPORT INFORMATION
  Report Type: Spontaneous
  Country: IT (occurrence: None)
  Receive Date: 20140415
  Receipt Date: 20140616
  Transmission Date: 20141212
  Serious: Yes (Hospitalization)
  Sender: FDA-Public Use
  Company Number: 2014AP002568

PATIENT
  Age: 80 Year
  Sex: Female

DRUGS (4)
  1. LEVOFLOXACIN [Suspect]
     Indication: BRONCHITIS
     Route: 048
     Dates: start: 20140319, end: 20140325
  2. COUMADIN [Suspect]
     Indication: DEEP VEIN THROMBOSIS
     Dosage: PRN
     Route: 048
     Dates: start: 20140314, end: 20140318
  3. ENOXAPARIN SODIUM [Suspect]
     Indication: DEEP VEIN THROMBOSIS
     Route: 058
     Dates: start: 20140319, end: 20140325
  4. ENALAPRIL MALEATE (ENALAPRIL MALEATE) [Concomitant]
     Indication: HYPERTENSION
     Route: 048

REACTIONS (3)
  - Drug interaction [None]
  - Haematuria [None]
  - International normalised ratio increased [None]
